FAERS Safety Report 4973213-8 (Version None)
Quarter: 2006Q2

REPORT INFORMATION
  Report Type: 
  Country: None (occurrence: None)
  Receive Date: 20060414
  Receipt Date: 20050729
  Transmission Date: 20061013
  Serious: Yes (Death)
  Sender: FDA-Public Use
  Company Number: US-MERCK-0508USA00343

PATIENT
  Age: 82 Year
  Sex: Female
  Weight: 71 kg

DRUGS (4)
  1. VIOXX [Suspect]
     Indication: NEUROPATHY PERIPHERAL
     Route: 048
     Dates: start: 20010112, end: 20010601
  2. VIOXX [Suspect]
     Route: 048
     Dates: start: 20010112, end: 20010601
  3. VIOXX [Suspect]
     Indication: ARTHROPATHY
     Route: 048
     Dates: start: 20010112, end: 20010601
  4. VIOXX [Suspect]
     Route: 048
     Dates: start: 20010112, end: 20010601

REACTIONS (2)
  - INJURY [None]
  - MYOCARDIAL INFARCTION [None]
